FAERS Safety Report 4506839-6 (Version None)
Quarter: 2004Q4

REPORT INFORMATION
  Report Type: 
  Country: None (occurrence: None)
  Receive Date: 20041117
  Receipt Date: 20041102
  Transmission Date: 20050328
  Serious: Yes (Other)
  Sender: FDA-Public Use
  Company Number: USA-2004-0017312

PATIENT
  Age: 61 Year
  Sex: Female

DRUGS (8)
  1. OXYCONTIN [Suspect]
  2. TENORMIN [Concomitant]
  3. GLUCOTROL [Concomitant]
  4. SYNTHROID [Concomitant]
  5. ZOCOR [Concomitant]
  6. DIOVAN HCT [Concomitant]
  7. NEURONTIN [Concomitant]
  8. LASIX [Concomitant]

REACTIONS (15)
  - ABDOMINAL PAIN UPPER [None]
  - CONSTIPATION [None]
  - DIABETES MELLITUS [None]
  - DIARRHOEA [None]
  - DRUG INEFFECTIVE [None]
  - DRUG WITHDRAWAL SYNDROME [None]
  - GASTROINTESTINAL DISORDER [None]
  - GENERALISED OEDEMA [None]
  - HEADACHE [None]
  - HYPERTENSION [None]
  - NAUSEA [None]
  - PAIN [None]
  - STOOL ANALYSIS ABNORMAL [None]
  - SUICIDAL IDEATION [None]
  - VOMITING [None]
